FAERS Safety Report 14664894 (Version 2)
Quarter: 2019Q1

REPORT INFORMATION
  Report Type: Other
  Country: GB (occurrence: GB)
  Receive Date: 20180321
  Receipt Date: 20190219
  Transmission Date: 20190417
  Serious: Yes (Death, Hospitalization, Other)
  Sender: FDA-Public Use
  Company Number: GB-ACTELION-A-CH2018-169474

PATIENT
  Age: 65 Year
  Sex: Female

DRUGS (3)
  1. BOSENTAN. [Suspect]
     Active Substance: BOSENTAN
     Indication: PULMONARY ARTERIAL HYPERTENSION
     Route: 048
  2. TADALAFIL. [Concomitant]
     Active Substance: TADALAFIL
     Indication: PULMONARY ARTERIAL HYPERTENSION
     Route: 065
  3. AMBRISENTAN [Concomitant]
     Active Substance: AMBRISENTAN
     Indication: PULMONARY ARTERIAL HYPERTENSION
     Route: 065

REACTIONS (9)
  - Disease progression [Fatal]
  - Computerised tomogram thorax abnormal [Fatal]
  - Pulmonary oedema [Fatal]
  - Systemic sclerosis pulmonary [Fatal]
  - Orthopnoea [Fatal]
  - Pulmonary veno-occlusive disease [Unknown]
  - Dyspnoea paroxysmal nocturnal [Fatal]
  - Lung disorder [Fatal]
  - Pulmonary arterial hypertension [Fatal]
